FAERS Safety Report 14281657 (Version 1)
Quarter: 2017Q4

REPORT INFORMATION
  Report Type: Spontaneous
  Country: US (occurrence: US)
  Receive Date: 20171213
  Receipt Date: 20171213
  Transmission Date: 20180321
  Serious: No
  Sender: FDA-Public Use
  Company Number: US-009507513-1712USA004830

PATIENT
  Age: 84 Year
  Sex: Female

DRUGS (17)
  1. ZOCOR [Suspect]
     Active Substance: SIMVASTATIN
     Dosage: 40 (UNITS NOT PROVIDED) DAILY
     Route: 048
  2. AMITRIPTYLINE HYDROCHLORIDE. [Concomitant]
     Active Substance: AMITRIPTYLINE HYDROCHLORIDE
     Dosage: 75 (UNITS NOT PROVIDED) AT BEDTIME
  3. METFORMIN [Concomitant]
     Active Substance: METFORMIN HYDROCHLORIDE
     Dosage: 850 (UNITS NOT PROVIDED) 3 TIMES PER DAY
  4. CINNAMON. [Concomitant]
     Active Substance: CINNAMON
     Dosage: UNK
  5. GLUCOSAMINE [Concomitant]
     Active Substance: GLUCOSAMINE
     Dosage: UNK
  6. PAROXETINE. [Concomitant]
     Active Substance: PAROXETINE
     Dosage: 40 (UNIT NOT PROVIDED) DAILY
  7. GLYBURIDE. [Concomitant]
     Active Substance: GLYBURIDE
     Dosage: 10 (UNITS NOT PROVIDED) DAILY
  8. CHROMIUM (UNSPECIFIED) [Concomitant]
     Active Substance: CHROMIC CHLORIDE\CHROMIUM
     Dosage: UNK
  9. PIOGLITAZONE. [Concomitant]
     Active Substance: PIOGLITAZONE
     Dosage: 450 (UNITS NOT PROVIDED) DAILY
  10. GINKGO [Concomitant]
     Active Substance: GINKGO
     Dosage: UNK
  11. ASCORBIC ACID. [Concomitant]
     Active Substance: ASCORBIC ACID
     Dosage: UNK
  12. ST JOHNS WORT [Concomitant]
     Active Substance: ST. JOHN^S WORT
     Dosage: 300 (UNITS NOT PROVIDED) 3 TIMES PER DAY
  13. HYDROXYZINE PAMOATE. [Concomitant]
     Active Substance: HYDROXYZINE PAMOATE
     Dosage: 50 (UNITS NOT PROVIDED) AT BEDTIME
  14. NIACIN. [Concomitant]
     Active Substance: NIACIN
     Dosage: UNK
  15. FOSAMAX [Concomitant]
     Active Substance: ALENDRONATE SODIUM
     Dosage: 10 (UNITS NOT PROVIDED) DAILY
     Route: 048
  16. DILTIAZEM XR [Interacting]
     Active Substance: DILTIAZEM
     Dosage: 300 (UNITS NOT PROVIDED) DAILY
  17. CELECOXIB. [Concomitant]
     Active Substance: CELECOXIB
     Dosage: 200 (UNITS NOT PROVIDED) TWICE DAILY

REACTIONS (2)
  - Circumstance or information capable of leading to medication error [Unknown]
  - Drug interaction [Unknown]
